FAERS Safety Report 11519056 (Version 1)
Quarter: 2015Q3

REPORT INFORMATION
  Report Type: Spontaneous
  Country: US (occurrence: US)
  Receive Date: 20150917
  Receipt Date: 20150917
  Transmission Date: 20151125
  Serious: No
  Sender: FDA-Public Use
  Company Number: US-ALLERGAN-1419753US

PATIENT
  Age: 78 Year
  Sex: Female

DRUGS (2)
  1. VANIQA [Suspect]
     Active Substance: EFLORNITHINE HYDROCHLORIDE
     Indication: HAIR GROWTH ABNORMAL
     Dosage: UNK, BID
     Route: 061
     Dates: start: 2014, end: 201409
  2. VANIQA [Suspect]
     Active Substance: EFLORNITHINE HYDROCHLORIDE
     Dosage: UNK UNK, QD
     Route: 061
     Dates: start: 201409

REACTIONS (4)
  - Therapeutic response decreased [Unknown]
  - Incorrect dose administered [Unknown]
  - Pain of skin [Not Recovered/Not Resolved]
  - Alopecia [Not Recovered/Not Resolved]

NARRATIVE: CASE EVENT DATE: 201406
